FAERS Safety Report 6029363-0 (Version None)
Quarter: 2009Q1

REPORT INFORMATION
  Report Type: 
  Country: None (occurrence: None)
  Receive Date: 20090105
  Receipt Date: 20081223
  Transmission Date: 20090719
  Serious: Yes (Death, Life-Threatening, Hospitalization)
  Sender: FDA-Public Use
  Company Number: 2008SP010837

PATIENT
  Age: 60 Year
  Sex: Male

DRUGS (2)
  1. TEMODAL [Suspect]
     Indication: HAEMANGIOBLASTOMA
     Dosage: 75 MG
     Dates: end: 20080401
  2. PHENYTOIN [Concomitant]

REACTIONS (2)
  - INFECTION [None]
  - PANCYTOPENIA [None]
